FAERS Safety Report 5808954-3 (Version None)
Quarter: 2008Q3

REPORT INFORMATION
  Report Type: 
  Country: None (occurrence: None)
  Receive Date: 20080710
  Receipt Date: 20080710
  Transmission Date: 20090109
  Serious: Yes (Life-Threatening)
  Sender: FDA-Public Use
  Company Number: None

PATIENT
  Age: 49 Year
  Sex: Male
  Weight: 79.3795 kg

DRUGS (2)
  1. CRESTOR [Suspect]
     Indication: BLOOD CHOLESTEROL INCREASED
     Dosage: 5 MG ONCE DAILY PO
     Route: 048
     Dates: start: 20071203, end: 20071228
  2. ZOCOR [Suspect]
     Dosage: 10 MG ONCE DAILY PO
     Route: 048
     Dates: start: 20080108, end: 20080314

REACTIONS (8)
  - ANXIETY [None]
  - DIZZINESS [None]
  - HYPERTENSION [None]
  - MUSCULAR WEAKNESS [None]
  - NERVE DEGENERATION [None]
  - OPTIC NERVE DISORDER [None]
  - PARAESTHESIA [None]
  - TINNITUS [None]
